FAERS Safety Report 25379077 (Version 1)
Quarter: 2025Q2

REPORT INFORMATION
  Report Type: Report from Study
  Country: JP (occurrence: JP)
  Receive Date: 20250530
  Receipt Date: 20250530
  Transmission Date: 20250716
  Serious: Yes (Death, Other)
  Sender: ROCHE
  Company Number: JP-CHUGAI-2021023620

PATIENT
  Age: 72 Year
  Sex: Male

DRUGS (5)
  1. TECENTRIQ [Suspect]
     Active Substance: ATEZOLIZUMAB
     Indication: Hepatocellular carcinoma
     Route: 065
     Dates: start: 20210720
  2. TECENTRIQ [Suspect]
     Active Substance: ATEZOLIZUMAB
     Route: 065
     Dates: start: 20211105, end: 20220228
  3. TECENTRIQ [Suspect]
     Active Substance: ATEZOLIZUMAB
     Route: 065
     Dates: end: 20230123
  4. AVASTIN [Suspect]
     Active Substance: BEVACIZUMAB
     Indication: Hepatocellular carcinoma
     Route: 065
     Dates: start: 20210720
  5. AVASTIN [Suspect]
     Active Substance: BEVACIZUMAB
     Route: 065
     Dates: end: 20230123

REACTIONS (15)
  - Sputum retention [Recovered/Resolved]
  - Dysphonia [Recovered/Resolved]
  - Dyspnoea exertional [Unknown]
  - Proteinuria [Recovered/Resolved]
  - Blood potassium increased [Unknown]
  - Hypertension [Unknown]
  - Urinary occult blood [Not Recovered/Not Resolved]
  - Anaemia [Unknown]
  - Hypozincaemia [Recovered/Resolved]
  - Scrotal oedema [Not Recovered/Not Resolved]
  - Oedema peripheral [Not Recovered/Not Resolved]
  - Hyperammonaemia [Unknown]
  - Hypoalbuminaemia [Unknown]
  - Oedema [Not Recovered/Not Resolved]
  - Hepatocellular carcinoma [Fatal]

NARRATIVE: CASE EVENT DATE: 20210813
